FAERS Safety Report 10059748 (Version 2)
Quarter: 2014Q2

REPORT INFORMATION
  Report Type: Spontaneous
  Country: US (occurrence: US)
  Receive Date: 20140404
  Receipt Date: 20140408
  Transmission Date: 20141212
  Serious: No
  Sender: FDA-Public Use
  Company Number: US-GLAXOSMITHKLINE-A0954167A

PATIENT
  Age: 53 Year
  Sex: Female
  Weight: 76.27 kg

DRUGS (18)
  1. BENLYSTA [Suspect]
     Indication: SYSTEMIC LUPUS ERYTHEMATOSUS
     Dosage: 10MGK EVERY 28 DAYS
     Route: 042
     Dates: start: 20110922
  2. PLAQUENIL [Concomitant]
     Dosage: 200MG PER DAY
  3. PREDNISONE [Concomitant]
     Dosage: 5MG PER DAY
  4. OXYCODONE [Concomitant]
     Indication: PAIN
  5. NORFLEX [Concomitant]
  6. VOLTAREN [Concomitant]
  7. MORPHINE [Concomitant]
     Dosage: 30MG PER DAY
  8. MELOXICAM [Concomitant]
     Dosage: 15MG PER DAY
  9. ZOLMITRIPTAN [Concomitant]
     Indication: MIGRAINE
  10. RESTASIS [Concomitant]
  11. LASIX [Concomitant]
  12. SYNTHROID [Concomitant]
     Dosage: 15MCG PER DAY
  13. PRISTIQ [Concomitant]
     Indication: DEPRESSION
  14. NEXIUM [Concomitant]
     Dosage: 40MG PER DAY
  15. VERAPAMIL [Concomitant]
     Dosage: 240MG PER DAY
  16. POTASSIUM CHLORIDE [Concomitant]
  17. ESTRADIOL [Concomitant]
     Dosage: 1MG PER DAY
  18. TOPAMAX [Concomitant]
     Dosage: 100MG PER DAY

REACTIONS (6)
  - Vomiting [Recovered/Resolved]
  - Abdominal discomfort [Not Recovered/Not Resolved]
  - Weight decreased [Not Recovered/Not Resolved]
  - Headache [Recovered/Resolved]
  - Nausea [Recovered/Resolved]
  - Diarrhoea [Not Recovered/Not Resolved]
